FAERS Safety Report 6832988-3 (Version None)
Quarter: 2010Q3

REPORT INFORMATION
  Report Type: 
  Country: None (occurrence: None)
  Receive Date: 20100712
  Receipt Date: 20100602
  Transmission Date: 20110219
  Serious: No
  Sender: FDA-Public Use
  Company Number: US-BIOGENIDEC-2010BI018278

PATIENT
  Age: 64 Year
  Sex: Female

DRUGS (4)
  1. AVONEX [Suspect]
     Indication: MULTIPLE SCLEROSIS
     Route: 030
     Dates: start: 19961001, end: 20030830
  2. AVONEX [Suspect]
     Route: 030
     Dates: start: 20030830
  3. OXYCONTIN [Concomitant]
     Indication: BACK PAIN
  4. VICODIN [Concomitant]
     Indication: PROPHYLAXIS
     Dates: start: 19960101, end: 20100601

REACTIONS (4)
  - FALL [None]
  - INJECTION SITE PAIN [None]
  - PAIN [None]
  - RASH GENERALISED [None]
